FAERS Safety Report 5181904-1 (Version None)
Quarter: 2006Q4

REPORT INFORMATION
  Report Type: 
  Country: None (occurrence: None)
  Receive Date: 20061220
  Receipt Date: 20060323
  Transmission Date: 20070319
  Serious: No
  Sender: FDA-Public Use
  Company Number: US-GLAXOSMITHKLINE-A0598908A

PATIENT
  Age: 33 Year
  Sex: Female

DRUGS (1)
  1. COMMIT [Suspect]
     Dosage: 4MG SINGLE DOSE
     Route: 002

REACTIONS (4)
  - ANXIETY [None]
  - DIZZINESS [None]
  - FOAMING AT MOUTH [None]
  - MALAISE [None]
